FAERS Safety Report 16751549 (Version 2)
Quarter: 2019Q3

REPORT INFORMATION
  Report Type: Spontaneous
  Country: AU (occurrence: AU)
  Receive Date: 20190828
  Receipt Date: 20190919
  Transmission Date: 20191005
  Serious: Yes (Hospitalization)
  Sender: FDA-Public Use
  Company Number: AU-CELGENEUS-AUS-20190808207

PATIENT
  Sex: Female
  Weight: 100 kg

DRUGS (22)
  1. ABRAXANE [Suspect]
     Active Substance: PACLITAXEL
     Route: 065
     Dates: start: 20190828
  2. ABRAXANE [Suspect]
     Active Substance: PACLITAXEL
     Route: 065
     Dates: start: 20190626, end: 20190626
  3. ABRAXANE [Suspect]
     Active Substance: PACLITAXEL
     Route: 065
     Dates: start: 20190703, end: 20190703
  4. ABRAXANE [Suspect]
     Active Substance: PACLITAXEL
     Route: 065
     Dates: start: 20190710, end: 20190710
  5. GEMCITABINE. [Concomitant]
     Active Substance: GEMCITABINE
     Route: 065
     Dates: start: 20190605, end: 20190605
  6. GEMCITABINE. [Concomitant]
     Active Substance: GEMCITABINE
     Route: 065
     Dates: start: 20190821, end: 20190821
  7. GEMCITABINE. [Concomitant]
     Active Substance: GEMCITABINE
     Route: 065
     Dates: start: 20190710, end: 20190710
  8. GEMCITABINE. [Concomitant]
     Active Substance: GEMCITABINE
     Route: 065
     Dates: start: 20190724, end: 20190724
  9. ABRAXANE [Suspect]
     Active Substance: PACLITAXEL
     Indication: DUCTAL ADENOCARCINOMA OF PANCREAS
     Route: 065
     Dates: start: 20190528, end: 20190528
  10. OLECLUMAB. [Concomitant]
     Active Substance: OLECLUMAB
     Route: 041
     Dates: start: 20190724, end: 20190724
  11. OLECLUMAB. [Concomitant]
     Active Substance: OLECLUMAB
     Route: 041
     Dates: start: 20190626, end: 20190626
  12. ABRAXANE [Suspect]
     Active Substance: PACLITAXEL
     Route: 065
     Dates: start: 20190731, end: 20190731
  13. OLECLUMAB. [Concomitant]
     Active Substance: OLECLUMAB
     Indication: DUCTAL ADENOCARCINOMA OF PANCREAS
     Route: 041
     Dates: start: 20190528, end: 20190528
  14. GEMCITABINE. [Concomitant]
     Active Substance: GEMCITABINE
     Indication: DUCTAL ADENOCARCINOMA OF PANCREAS
     Route: 065
     Dates: start: 20190528, end: 20190528
  15. GEMCITABINE. [Concomitant]
     Active Substance: GEMCITABINE
     Route: 065
     Dates: start: 20190703, end: 20190703
  16. ABRAXANE [Suspect]
     Active Substance: PACLITAXEL
     Route: 065
     Dates: start: 20190605, end: 20190605
  17. ABRAXANE [Suspect]
     Active Substance: PACLITAXEL
     Route: 065
     Dates: start: 20190724, end: 20190724
  18. ABRAXANE [Suspect]
     Active Substance: PACLITAXEL
     Route: 065
     Dates: start: 20190807, end: 20190807
  19. ABRAXANE [Suspect]
     Active Substance: PACLITAXEL
     Route: 065
     Dates: start: 20190821, end: 20190821
  20. GEMCITABINE. [Concomitant]
     Active Substance: GEMCITABINE
     Route: 065
     Dates: start: 20190626, end: 20190626
  21. GEMCITABINE. [Concomitant]
     Active Substance: GEMCITABINE
     Route: 065
     Dates: start: 20190731, end: 20190731
  22. GEMCITABINE. [Concomitant]
     Active Substance: GEMCITABINE
     Route: 065
     Dates: start: 20190807, end: 20190807

REACTIONS (1)
  - Abdominal pain [Recovered/Resolved]

NARRATIVE: CASE EVENT DATE: 20190811
